FAERS Safety Report 17961101 (Version 1)
Quarter: 2020Q2

REPORT INFORMATION
  Report Type: Spontaneous
  Country: US (occurrence: US)
  Receive Date: 20200629
  Receipt Date: 20200629
  Transmission Date: 20200714
  Serious: No
  Sender: FDA-Public Use
  Company Number: US-ROCHE-2348532

PATIENT
  Age: 45 Year
  Sex: Female

DRUGS (2)
  1. XELODA [Suspect]
     Active Substance: CAPECITABINE
     Indication: BREAST CANCER
     Dosage: EVERY MORNING?REDUCED TO 1000 MG EVERY MORNING.
     Route: 048
     Dates: start: 201905
  2. XELODA [Suspect]
     Active Substance: CAPECITABINE
     Dosage: EVERY EVENING?REDUCED TO 1500 MG EVERY EVENING.
     Route: 048
     Dates: start: 201905

REACTIONS (1)
  - Palmar-plantar erythrodysaesthesia syndrome [Unknown]

NARRATIVE: CASE EVENT DATE: 20190628
